FAERS Safety Report 9924843 (Version 1)
Quarter: 2014Q1

REPORT INFORMATION
  Report Type: Spontaneous
  Country: US (occurrence: None)
  Receive Date: 20140221
  Receipt Date: 20140221
  Transmission Date: 20141002
  Serious: Yes (Hospitalization)
  Sender: FDA-Public Use
  Company Number: US-ZYDUS-002541

PATIENT
  Age: 65 Year
  Sex: Male

DRUGS (2)
  1. WARFARIN (WARFARIN) [Suspect]
  2. ASCORBIC ACID [Suspect]
     Route: 048

REACTIONS (3)
  - Drug resistance [None]
  - Drug interaction [None]
  - International normalised ratio increased [None]
